FAERS Safety Report 7956323-2 (Version None)
Quarter: 2011Q4

REPORT INFORMATION
  Report Type: 
  Country: None (occurrence: None)
  Receive Date: 20111205
  Receipt Date: 20111122
  Transmission Date: 20120403
  Serious: Yes (Hospitalization)
  Sender: FDA-Public Use
  Company Number: US-SANOFI-AVENTIS-2011SA075722

PATIENT
  Sex: Female
  Weight: 48.6 kg

DRUGS (5)
  1. ASPIRIN [Suspect]
     Indication: PRODUCT USED FOR UNKNOWN INDICATION
     Dates: start: 20100301, end: 20111113
  2. VALSARTAN [Concomitant]
  3. SIMVASTATIN [Concomitant]
  4. PLAVIX [Suspect]
     Dates: start: 20100301, end: 20111113
  5. DONEPEZIL HCL [Concomitant]

REACTIONS (6)
  - GASTROINTESTINAL ULCER HAEMORRHAGE [None]
  - WEIGHT DECREASED [None]
  - ASTHENIA [None]
  - HYPOTENSION [None]
  - ANAEMIA [None]
  - BACK PAIN [None]
